FAERS Safety Report 17210126 (Version 7)
Quarter: 2020Q1

REPORT INFORMATION
  Report Type: Spontaneous
  Country: US (occurrence: US)
  Receive Date: 20191227
  Receipt Date: 20200319
  Transmission Date: 20200409
  Serious: No
  Sender: FDA-Public Use
  Company Number: US-PFIZER INC-2019555268

PATIENT
  Age: 67 Year
  Sex: Female
  Weight: 58.97 kg

DRUGS (2)
  1. PREMARIN [Suspect]
     Active Substance: ESTROGENS, CONJUGATED
     Indication: POSTOPERATIVE CARE
     Dosage: 0.5 G, 2X/WEEK
     Route: 067
     Dates: start: 20191104, end: 20191211
  2. PREMARIN [Suspect]
     Active Substance: ESTROGENS, CONJUGATED
     Indication: BLADDER PROLAPSE
     Dosage: UNK (LESS THAN 1/2 GM)
     Route: 067
     Dates: start: 201911, end: 20191209

REACTIONS (15)
  - Product use in unapproved indication [Unknown]
  - Headache [Recovered/Resolved]
  - Feeling abnormal [Recovered/Resolved]
  - Affective disorder [Recovered/Resolved]
  - Taste disorder [Recovered/Resolved]
  - Dry skin [Recovered/Resolved]
  - Thirst [Recovered/Resolved]
  - Lethargy [Recovered/Resolved]
  - Tremor [Recovered/Resolved]
  - Skin odour abnormal [Recovered/Resolved]
  - Cognitive disorder [Recovered/Resolved]
  - Product complaint [Unknown]
  - Off label use [Unknown]
  - Incorrect dose administered [Unknown]
  - Tongue disorder [Recovered/Resolved]

NARRATIVE: CASE EVENT DATE: 20191104
